FAERS Safety Report 6566642-2 (Version None)
Quarter: 2010Q1

REPORT INFORMATION
  Report Type: 
  Country: None (occurrence: None)
  Receive Date: 20100127
  Receipt Date: 20091228
  Transmission Date: 20100710
  Serious: Yes (Hospitalization, Other)
  Sender: FDA-Public Use
  Company Number: AUR-APL-2010-00138

PATIENT
  Age: 41 Year
  Sex: Female
  Weight: 95.24 kg

DRUGS (8)
  1. HYDROCHLOROTHIAZIDE [Suspect]
     Dosage: 12.5MG-QD-ORAL
     Route: 048
  2. ATENOLOL [Suspect]
     Dosage: 100MG-ORAL
     Route: 048
  3. LORAZEPAM [Suspect]
     Dosage: 0.5MG-TID-ORAL
     Route: 048
  4. SEROQUEL [Suspect]
     Indication: BIPOLAR DISORDER
     Dosage: 80MG-QHS-ORAL
     Route: 048
     Dates: start: 20090101
  5. EFFEXOR [Suspect]
  6. PRISTIQ [Suspect]
     Dosage: 50MG-QD-ORAL
     Route: 048
  7. BUPROPION [Suspect]
     Dosage: 300MG-QD-ORAL
     Route: 048
  8. VALSARTAN [Suspect]
     Dosage: 80MG-QD-ORAL
     Route: 048

REACTIONS (3)
  - GASTRIC DISORDER [None]
  - MULTIPLE DRUG OVERDOSE INTENTIONAL [None]
  - WEIGHT INCREASED [None]
